FAERS Safety Report 8965382 (Version 1)
Quarter: 2012Q4

REPORT INFORMATION
  Report Type: 
  Country: GB (occurrence: GB)
  Receive Date: 20121214
  Receipt Date: 20121214
  Transmission Date: 20130627
  Serious: Yes (Hospitalization)
  Sender: FDA-Public Use
  Company Number: GB-UCBSA-072797

PATIENT
  Age: 50 Year
  Sex: Female

DRUGS (5)
  1. CIMZIA [Suspect]
     Indication: RHEUMATOID ARTHRITIS
     Route: 058
     Dates: start: 20120424, end: 20121024
  2. BENDROFLUMETHIAZIDE [Concomitant]
  3. HYDROXYCHLOROQUINE [Concomitant]
  4. LEFLUNOMIDE [Concomitant]
  5. METHOTREXATE [Concomitant]

REACTIONS (5)
  - Metastases to lung [Unknown]
  - Metastases to bone [Unknown]
  - Pathological fracture [Unknown]
  - Renal cancer [Unknown]
  - Spinal cord disorder [Unknown]
